FAERS Safety Report 8831323 (Version 3)
Quarter: 2013Q3

REPORT INFORMATION
  Report Type: Spontaneous
  Country: US (occurrence: US)
  Receive Date: 20121008
  Receipt Date: 20130830
  Transmission Date: 20140515
  Serious: Yes (Death, Hospitalization, Other)
  Sender: FDA-Public Use
  Company Number: US-PFIZER INC-2012244321

PATIENT
  Age: 64 Year
  Sex: Female
  Weight: 124 kg

DRUGS (4)
  1. REVATIO [Suspect]
     Indication: PULMONARY HYPERTENSION
     Dosage: 20 MG, 3X/DAY
     Route: 048
     Dates: start: 2010, end: 20120917
  2. REVATIO [Suspect]
     Dosage: 40 MG, 3X/DAY (20 MG (2TABLETS TID))
     Route: 048
     Dates: start: 20101025
  3. REVATIO [Suspect]
     Dosage: 40 MG, 3X/DAY
     Route: 048
     Dates: start: 20120917
  4. REVATIO [Suspect]
     Dosage: TAKING HALF OF 40 MG BY SPLITTING THE TABLET, UNK
     Route: 048

REACTIONS (9)
  - Multi-organ failure [Fatal]
  - Cardiac failure congestive [Unknown]
  - Respiratory failure [Unknown]
  - Haemorrhage [Unknown]
  - Thrombosis [Unknown]
  - Breast mass [Unknown]
  - Cardiac failure congestive [Unknown]
  - Peau d^orange [Unknown]
  - Blood test abnormal [Unknown]
